FAERS Safety Report 6569027-8 (Version None)
Quarter: 2010Q1

REPORT INFORMATION
  Report Type: 
  Country: None (occurrence: None)
  Receive Date: 20100203
  Receipt Date: 20100128
  Transmission Date: 20100710
  Serious: Yes (Hospitalization)
  Sender: FDA-Public Use
  Company Number: NL-B.I. PHARMACEUTICALS,INC./RIDGEFIELD-2010-DE-00489GD

PATIENT
  Age: 68 Year
  Sex: Male

DRUGS (5)
  1. ALTEPLASE [Suspect]
     Indication: ISCHAEMIC STROKE
     Dosage: 0.9 MG/KG
     Route: 042
  2. DIPYRIDAMOLE [Suspect]
     Indication: CEREBROVASCULAR ACCIDENT PROPHYLAXIS
     Dosage: 400 MG
  3. DIPYRIDAMOLE [Suspect]
     Indication: PROPHYLAXIS
  4. ASPIRIN [Suspect]
     Dosage: 100 MG
  5. ATORVASTATIN [Concomitant]
     Dosage: 40 MG

REACTIONS (2)
  - HAEMORRHAGE [None]
  - ISCHAEMIC STROKE [None]
